FAERS Safety Report 24533993 (Version 1)
Quarter: 2024Q4

REPORT INFORMATION
  Report Type: Spontaneous
  Country: FR (occurrence: FR)
  Receive Date: 20241022
  Receipt Date: 20241022
  Transmission Date: 20250115
  Serious: Yes (Hospitalization, Other)
  Sender: WAYLIS THERAPEUTICS LLC
  Company Number: FR-ASTRAZENECA-202409GLO012324FR

PATIENT
  Age: 30 Year
  Sex: Female

DRUGS (10)
  1. DIAZEPAM [Suspect]
     Active Substance: DIAZEPAM
     Indication: Product used for unknown indication
     Dosage: UNK
     Dates: start: 20240906
  2. BROMAZEPAM [Suspect]
     Active Substance: BROMAZEPAM
     Indication: Product used for unknown indication
     Dosage: UNK
     Dates: start: 20240906
  3. QUETIAPINE FUMARATE [Suspect]
     Active Substance: QUETIAPINE FUMARATE
     Indication: Product used for unknown indication
     Dosage: UNK
     Dates: start: 20240906
  4. TRAMADOL [Suspect]
     Active Substance: TRAMADOL
     Indication: Product used for unknown indication
     Dosage: UNK UNK, QD
  5. CANNABIS SATIVA SUBSP. INDICA TOP [Suspect]
     Active Substance: CANNABIS SATIVA SUBSP. INDICA TOP
     Indication: Product used for unknown indication
     Dosage: 0 TO 20 JOINTS PER DAY. FIRST CONTACT AT AGE 15
     Route: 050
     Dates: start: 2009
  6. COCAINE [Suspect]
     Active Substance: COCAINE
     Indication: Product used for unknown indication
     Dosage: STARTED USING 2.5 YEARS AGO. REGULAR USE FOR 3-4 MONTHS A YEAR AND A HALF AGO.
     Route: 050
     Dates: start: 2021
  7. CHLORPROMAZINE [Suspect]
     Active Substance: CHLORPROMAZINE
     Indication: Product used for unknown indication
  8. LITHIUM [Suspect]
     Active Substance: LITHIUM
     Indication: Product used for unknown indication
  9. ALCOHOL [Suspect]
     Active Substance: ALCOHOL
     Indication: Product used for unknown indication
     Dosage: BETWEEN 0 AND 10US PER DAY. CURRENTLY NO DAILY CONSUMPTION, VARYING BETWEEN 0 AND 8/10 STANDARD U...
     Route: 050
  10. HEROIN [Suspect]
     Active Substance: DIAMORPHINE
     Indication: Product used for unknown indication
     Dosage: LAST USED 4-5 DAYS AGO (1G A DAY FOR 4 DAYS)
     Route: 050

REACTIONS (6)
  - Drug abuse [Not Recovered/Not Resolved]
  - Tremor [Recovering/Resolving]
  - Withdrawal syndrome [Recovered/Resolved]
  - Suicidal ideation [Unknown]
  - Anxiety [Unknown]
  - Enuresis [Recovering/Resolving]

NARRATIVE: CASE EVENT DATE: 20240821
